FAERS Safety Report 22201929 (Version 1)
Quarter: 2023Q2

REPORT INFORMATION
  Report Type: Report from Study
  Country: DK (occurrence: DK)
  Receive Date: 20230412
  Receipt Date: 20230412
  Transmission Date: 20230722
  Serious: Yes (Hospitalization, Other)
  Sender: FDA-Public Use
  Company Number: DK-MYLANLABS-2023M1038173

PATIENT
  Age: 56 Year
  Sex: Male

DRUGS (2)
  1. LAMOTRIGINE [Suspect]
     Active Substance: LAMOTRIGINE
     Indication: Prophylaxis
     Dosage: 125 MILLIGRAM, MEDICATION BEFORE LOADING
     Route: 048
  2. CARBAMAZEPINE [Suspect]
     Active Substance: CARBAMAZEPINE
     Indication: Prophylaxis
     Dosage: 300 MILLIGRAM, MEDICATION BEFORE LOADING
     Route: 048

REACTIONS (1)
  - Drug ineffective [Unknown]
